FAERS Safety Report 13305906 (Version 1)
Quarter: 2017Q1

REPORT INFORMATION
  Report Type: Spontaneous
  Country: US (occurrence: US)
  Receive Date: 20170308
  Receipt Date: 20170308
  Transmission Date: 20170428
  Serious: Yes (Other)
  Sender: FDA-Public Use
  Company Number: US-PURDUE-USA-2017-0137005

PATIENT
  Sex: Female

DRUGS (1)
  1. OXYCONTIN [Suspect]
     Active Substance: OXYCODONE HYDROCHLORIDE
     Indication: PRODUCT USED FOR UNKNOWN INDICATION
     Dosage: 0 MG, BID
     Route: 048
     Dates: start: 2002

REACTIONS (4)
  - Coma [Unknown]
  - Feeling cold [Unknown]
  - Pancreatitis [Unknown]
  - Sensation of foreign body [Unknown]
